FAERS Safety Report 6518189-7 (Version None)
Quarter: 2009Q4

REPORT INFORMATION
  Report Type: 
  Country: None (occurrence: None)
  Receive Date: 20091223
  Receipt Date: 20091223
  Transmission Date: 20100525
  Serious: Yes (Other)
  Sender: FDA-Public Use
  Company Number: None

PATIENT
  Age: 61 Year
  Sex: Female
  Weight: 72.5755 kg

DRUGS (1)
  1. FENTANYL 50 MCG PATCHES SANDOZ [Suspect]
     Indication: FIBROMYALGIA
     Dosage: APPLY 1 PATCH AND CHANGE EVERY 60 HOURS
     Dates: start: 20091119

REACTIONS (3)
  - APPLICATION SITE PAIN [None]
  - HEART RATE IRREGULAR [None]
  - PRODUCT SUBSTITUTION ISSUE [None]
